FAERS Safety Report 5840240-8 (Version None)
Quarter: 2008Q3

REPORT INFORMATION
  Report Type: 
  Country: None (occurrence: None)
  Receive Date: 20080730
  Receipt Date: 20080423
  Transmission Date: 20090109
  Serious: No
  Sender: FDA-Public Use
  Company Number: 2008-US-000299

PATIENT
  Age: 10 Year
  Sex: Male
  Weight: 23.6 kg

DRUGS (1)
  1. INCRELEX [Suspect]
     Indication: GROWTH RETARDATION
     Dosage: 20 UNITS, BID, SUBCUTANEOUS
     Route: 058
     Dates: start: 20061201

REACTIONS (1)
  - HAIR TEXTURE ABNORMAL [None]
